FAERS Safety Report 25928304 (Version 1)
Quarter: 2025Q4

REPORT INFORMATION
  Report Type: Spontaneous
  Country: EU (occurrence: EU)
  Receive Date: 20251016
  Receipt Date: 20251016
  Transmission Date: 20260118
  Serious: Yes (Hospitalization)
  Sender: AUROBINDO
  Company Number: EU-AFSSAPS-ST2025001113

PATIENT
  Age: 77 Year
  Sex: Female

DRUGS (1)
  1. IRBESARTAN [Suspect]
     Active Substance: IRBESARTAN
     Indication: Product used for unknown indication
     Dosage: 150 MILLIGRAM
     Route: 048
     Dates: start: 20250806, end: 20250806

REACTIONS (2)
  - Hypotension [Recovering/Resolving]
  - Wrong drug [Recovered/Resolved]

NARRATIVE: CASE EVENT DATE: 20250806
